FAERS Safety Report 4399546-4 (Version None)
Quarter: 2004Q3

REPORT INFORMATION
  Report Type: 
  Country: None (occurrence: None)
  Receive Date: 20040716
  Receipt Date: 20040607
  Transmission Date: 20050211
  Serious: Yes (Hospitalization)
  Sender: FDA-Public Use
  Company Number: PT-GLAXOSMITHKLINE-B0335929A

PATIENT
  Age: 39 Year
  Sex: Male
  Weight: 47 kg

DRUGS (7)
  1. EPIVIR [Suspect]
     Indication: HIV INFECTION
     Dosage: 150MG PER DAY
     Route: 048
     Dates: start: 20000101
  2. ISONIAZID [Suspect]
     Indication: TUBERCULOSIS PROPHYLAXIS
     Route: 048
     Dates: start: 20040427, end: 20040504
  3. RETROVIR [Suspect]
     Indication: HIV INFECTION
     Dosage: 100MG PER DAY
     Route: 048
     Dates: start: 20000101
  4. DIDANOSINE [Suspect]
     Indication: HIV INFECTION
     Dosage: 100MG PER DAY
     Route: 048
     Dates: start: 20000101
  5. CLONIDINE HCL [Concomitant]
     Dosage: .3MG PER DAY
     Route: 048
     Dates: start: 20010101
  6. MINOXIDIL [Concomitant]
     Dosage: 2.5MG PER DAY
     Route: 048
     Dates: start: 20031001
  7. LISINOPRIL [Concomitant]
     Dosage: 40MG PER DAY
     Route: 048
     Dates: start: 20010101

REACTIONS (7)
  - ALANINE AMINOTRANSFERASE INCREASED [None]
  - BLOOD ALKALINE PHOSPHATASE INCREASED [None]
  - BLOOD LACTATE DEHYDROGENASE INCREASED [None]
  - CONFUSIONAL STATE [None]
  - DRUG INTERACTION [None]
  - GAMMA-GLUTAMYLTRANSFERASE INCREASED [None]
  - HEPATITIS TOXIC [None]
